FAERS Safety Report 14257002 (Version 3)
Quarter: 2018Q1

REPORT INFORMATION
  Report Type: Spontaneous
  Country: US (occurrence: US)
  Receive Date: 20171206
  Receipt Date: 20180104
  Transmission Date: 20180508
  Serious: Yes (Other)
  Sender: FDA-Public Use
  Company Number: US-009507513-1711USA013934

PATIENT
  Age: 53 Year
  Sex: Female
  Weight: 69.84 kg

DRUGS (5)
  1. KEYTRUDA [Suspect]
     Active Substance: PEMBROLIZUMAB
     Indication: NON-SMALL CELL LUNG CANCER
     Dosage: 200 MG, Q 3 WKS
     Route: 042
     Dates: start: 20170713, end: 20171026
  2. ZOCOR [Concomitant]
     Active Substance: SIMVASTATIN
     Indication: BLOOD CHOLESTEROL INCREASED
     Dosage: 5 MG TOTAL DAILY DOSE
     Route: 048
     Dates: start: 20170530
  3. ASPIR-81 [Concomitant]
     Active Substance: ASPIRIN
     Dosage: 81 MG, TOTAL DAILY DOSE
     Route: 048
     Dates: start: 20170530
  4. HYDROCHLOROTHIAZIDE (+) TRIAMTERENE [Concomitant]
     Active Substance: HYDROCHLOROTHIAZIDE\TRIAMTERENE
     Indication: HYPERTENSION
     Dosage: 37.5/25 MG, 1 TABLET A DAY
     Route: 048
     Dates: start: 20170627
  5. PERCOCET [Concomitant]
     Active Substance: ACETAMINOPHEN\OXYCODONE HYDROCHLORIDE
     Indication: PAIN
     Dosage: 5 - 325 MG, 1 -2 TABS, 2-4 HRS, AS NEEDED
     Route: 048
     Dates: start: 20170711

REACTIONS (2)
  - Malignant neoplasm progression [Unknown]
  - Blood thyroid stimulating hormone abnormal [Recovering/Resolving]

NARRATIVE: CASE EVENT DATE: 201710
